FAERS Safety Report 5153615-X (Version None)
Quarter: 2006Q4

REPORT INFORMATION
  Report Type: 
  Country: None (occurrence: None)
  Receive Date: 20061113
  Receipt Date: 20061031
  Transmission Date: 20070319
  Serious: Yes (Other)
  Sender: FDA-Public Use
  Company Number: 2006134246

PATIENT
  Sex: Female

DRUGS (3)
  1. AROMASIN [Suspect]
     Indication: BREAST CANCER
     Dosage: ORAL
     Route: 048
     Dates: start: 20060801
  2. ARIMIDEX [Suspect]
     Dosage: ORAL
     Route: 048
     Dates: start: 20060701, end: 20060801
  3. NOLVADEX [Suspect]
     Dosage: ORAL
     Route: 048
     Dates: start: 20060301

REACTIONS (2)
  - METASTASES TO BONE [None]
  - METRORRHAGIA [None]
